FAERS Safety Report 6431343-8 (Version None)
Quarter: 2009Q4

REPORT INFORMATION
  Report Type: 
  Country: None (occurrence: None)
  Receive Date: 20091106
  Receipt Date: 20091028
  Transmission Date: 20100525
  Serious: Yes (Hospitalization)
  Sender: FDA-Public Use
  Company Number: BR-ABBOTT-09P-020-0605501-00

PATIENT
  Sex: Female
  Weight: 69 kg

DRUGS (10)
  1. HUMIRA [Suspect]
     Indication: RHEUMATOID ARTHRITIS
     Route: 058
     Dates: start: 20061001
  2. PRELONE [Concomitant]
     Indication: PAIN
     Route: 048
     Dates: start: 20091005
  3. ATACAND HCT [Concomitant]
     Indication: BLOOD PRESSURE
     Dosage: 16/12.5MG
     Route: 048
  4. MARCUMAR [Concomitant]
     Indication: ANTICOAGULANT THERAPY
     Route: 048
  5. LANITOP [Concomitant]
     Indication: CARDIAC DISORDER
     Route: 048
  6. ROHYPNOL [Concomitant]
     Indication: SLEEP DISORDER THERAPY
     Route: 048
  7. AZOPT [Concomitant]
     Indication: GLAUCOMA
     Route: 047
  8. ALPHAGAN [Concomitant]
     Indication: GLAUCOMA
     Route: 047
  9. XALATAN [Concomitant]
     Indication: GLAUCOMA
     Route: 047
  10. LEFLUNOMIDE [Concomitant]
     Indication: RHEUMATOID ARTHRITIS
     Route: 048

REACTIONS (5)
  - ASTHENIA [None]
  - BLOOD CREATINE PHOSPHOKINASE ABNORMAL [None]
  - C-REACTIVE PROTEIN ABNORMAL [None]
  - PAIN [None]
  - RHEUMATOID FACTOR NEGATIVE [None]
